FAERS Safety Report 5586583-7 (Version None)
Quarter: 2008Q1

REPORT INFORMATION
  Report Type: 
  Country: None (occurrence: None)
  Receive Date: 20080110
  Receipt Date: 20070920
  Transmission Date: 20080703
  Serious: No
  Sender: FDA-Public Use
  Company Number: US-BAYER-US-2007-035655

PATIENT
  Sex: Female

DRUGS (1)
  1. YAZ [Suspect]
     Route: 048
     Dates: start: 20070916

REACTIONS (3)
  - DYSGEUSIA [None]
  - DYSPEPSIA [None]
  - NAUSEA [None]
